FAERS Safety Report 4625069-0 (Version None)
Quarter: 2005Q2

REPORT INFORMATION
  Report Type: 
  Country: None (occurrence: None)
  Receive Date: 20050325
  Receipt Date: 20050202
  Transmission Date: 20051028
  Serious: Yes (Hospitalization)
  Sender: FDA-Public Use
  Company Number: USA050188215

PATIENT
  Age: 84 Year
  Sex: Male

DRUGS (5)
  1. FORTEO [Suspect]
     Indication: OSTEOPOROSIS
     Dates: start: 20040715, end: 20050111
  2. PROTONIX [Concomitant]
  3. NORVASC [Concomitant]
  4. DIOVAN [Concomitant]
  5. LIPITOR [Concomitant]

REACTIONS (1)
  - PNEUMONIA [None]
